FAERS Safety Report 22797338 (Version 2)
Quarter: 2024Q1

REPORT INFORMATION
  Report Type: Spontaneous
  Country: US (occurrence: US)
  Receive Date: 20230808
  Receipt Date: 20240215
  Transmission Date: 20240410
  Serious: No
  Sender: FDA-Public Use
  Company Number: US-BIOGEN-2023BI01219847

PATIENT
  Sex: Female

DRUGS (1)
  1. TYSABRI [Suspect]
     Active Substance: NATALIZUMAB
     Indication: Multiple sclerosis
     Route: 050
     Dates: start: 20130717

REACTIONS (10)
  - Central nervous system lesion [Unknown]
  - Peroneal nerve palsy [Unknown]
  - Gait disturbance [Unknown]
  - Bronchitis [Not Recovered/Not Resolved]
  - Sinusitis [Recovered/Resolved]
  - Cystitis [Recovered/Resolved]
  - Multiple sclerosis [Not Recovered/Not Resolved]
  - Weight decreased [Not Recovered/Not Resolved]
  - Pneumonia [Recovered/Resolved with Sequelae]
  - Urinary tract infection [Recovered/Resolved]

NARRATIVE: CASE EVENT DATE: 20170101
